FAERS Safety Report 6291506-1 (Version None)
Quarter: 2009Q3

REPORT INFORMATION
  Report Type: 
  Country: None (occurrence: None)
  Receive Date: 20090730
  Receipt Date: 20090717
  Transmission Date: 20100115
  Serious: Yes (Hospitalization)
  Sender: FDA-Public Use
  Company Number: DE-MYLANLABS-2009S1012814

PATIENT
  Age: 74 Year
  Sex: Female
  Weight: 63.5 kg

DRUGS (6)
  1. LISINOPRIL AND HYDROCHLOROTHIAZIDE [Suspect]
     Indication: HYPERTENSION
     Dosage: 10 MG LISINOPRIL/6,25 MG HYDROCHLOROTHIAZIDE
     Route: 048
  2. BERLINSULIN /00646001/ [Suspect]
     Indication: TYPE 2 DIABETES MELLITUS
     Dosage: FRUH: 34 IE; ABENDS: 18 IE
     Route: 058
     Dates: start: 20090501
  3. ALPHAGAN [Concomitant]
     Indication: GLAUCOMA
  4. OMEPRAZOLE [Concomitant]
     Indication: REFLUX OESOPHAGITIS
     Route: 048
  5. SIMVASTATIN [Concomitant]
     Indication: HYPERCHOLESTEROLAEMIA
     Route: 048
  6. THYRONAJOD [Concomitant]
     Indication: HYPOTHYROIDISM
     Route: 048

REACTIONS (1)
  - HYPOGLYCAEMIA [None]
